FAERS Safety Report 11489703 (Version 2)
Quarter: 2015Q4

REPORT INFORMATION
  Report Type: Report from Study
  Country: JP (occurrence: JP)
  Receive Date: 20150910
  Receipt Date: 20151229
  Transmission Date: 20160304
  Serious: Yes (Hospitalization, Other)
  Sender: FDA-Public Use
  Company Number: JP-GLAXOSMITHKLINE-JP2015JPN125462

PATIENT
  Age: 41 Year
  Sex: Male
  Weight: 107 kg

DRUGS (37)
  1. LAMOTRIGINE. [Suspect]
     Active Substance: LAMOTRIGINE
     Dosage: 25 MG, QOD
     Route: 048
     Dates: start: 20100202, end: 20100222
  2. LAMOTRIGINE. [Suspect]
     Active Substance: LAMOTRIGINE
     Dosage: 30 MG, BID
     Route: 048
     Dates: start: 20100511, end: 20100524
  3. LAMOTRIGINE. [Suspect]
     Active Substance: LAMOTRIGINE
     Dosage: 50 MG, BID
     Route: 048
     Dates: start: 20100608, end: 20100621
  4. DIAMOX SEQUELS [Concomitant]
     Active Substance: ACETAZOLAMIDE
     Indication: EPILEPSY
     Dosage: 250 MG, 1D
  5. LAMOTRIGINE. [Suspect]
     Active Substance: LAMOTRIGINE
     Dosage: 25 MG, QD
     Route: 048
     Dates: start: 20100223, end: 20100329
  6. LAMOTRIGINE. [Suspect]
     Active Substance: LAMOTRIGINE
     Dosage: UNK UNK, QOD
     Route: 048
     Dates: start: 20100330, end: 20100412
  7. LAMOTRIGINE. [Suspect]
     Active Substance: LAMOTRIGINE
     Dosage: 25 MG, BID
     Route: 048
     Dates: start: 20100413, end: 20100510
  8. LAMOTRIGINE. [Suspect]
     Active Substance: LAMOTRIGINE
     Dosage: 50 MG, TID
     Route: 048
     Dates: start: 20100705, end: 20100720
  9. LAMOTRIGINE. [Suspect]
     Active Substance: LAMOTRIGINE
     Dosage: UNK UNK, TID
     Route: 048
     Dates: start: 20100721, end: 20100804
  10. LAMOTRIGINE. [Suspect]
     Active Substance: LAMOTRIGINE
     Dosage: UNK UNK, TID
     Route: 048
     Dates: start: 20100901, end: 20100915
  11. EXCEGRAN [Concomitant]
     Active Substance: ZONISAMIDE
     Indication: EPILEPSY
     Dosage: 200 MG, 1D
  12. TOPINA [Concomitant]
     Active Substance: TOPIRAMATE
     Dosage: 500 MG, 1D
     Dates: start: 20101103
  13. LAMOTRIGINE. [Suspect]
     Active Substance: LAMOTRIGINE
     Dosage: UNK UNK, TID
     Route: 048
     Dates: start: 20100805, end: 20100819
  14. DEPAKENE [Concomitant]
     Active Substance: VALPROIC ACID
     Indication: EPILEPSY
     Dosage: 1200 MG, 1D
     Dates: end: 20100929
  15. TOPINA [Concomitant]
     Active Substance: TOPIRAMATE
     Dosage: 450 MG, 1D
     Dates: start: 20100721, end: 20100804
  16. TOPINA [Concomitant]
     Active Substance: TOPIRAMATE
     Dosage: 400 MG, 1D
     Dates: start: 20101009, end: 20101019
  17. LAMOTRIGINE. [Suspect]
     Active Substance: LAMOTRIGINE
     Dosage: UNK UNK, TID
     Route: 048
     Dates: start: 20100622, end: 20100704
  18. LAMOTRIGINE. [Suspect]
     Active Substance: LAMOTRIGINE
     Dosage: 75 MG, TID
     Route: 048
     Dates: start: 20100820, end: 20100831
  19. TOPINA [Concomitant]
     Active Substance: TOPIRAMATE
     Dosage: 350 MG, 1D
     Dates: start: 20100902, end: 20101008
  20. TOPINA [Concomitant]
     Active Substance: TOPIRAMATE
     Dosage: 500 MG, 1D
     Dates: start: 20101020, end: 20101024
  21. AMLODIN [Concomitant]
     Active Substance: AMLODIPINE BESYLATE
     Dosage: UNK
  22. LAMOTRIGINE. [Suspect]
     Active Substance: LAMOTRIGINE
     Indication: EPILEPSY
     Dosage: 25 MG, QOD
     Route: 048
     Dates: start: 20100104, end: 20100115
  23. LAMOTRIGINE. [Suspect]
     Active Substance: LAMOTRIGINE
     Dosage: UNK UNK, TID
     Route: 048
     Dates: start: 20101020, end: 20110111
  24. DEPAKENE [Concomitant]
     Active Substance: VALPROIC ACID
     Dosage: 1100 MG, 1D
     Dates: start: 20100930
  25. TOPINA [Concomitant]
     Active Substance: TOPIRAMATE
     Dosage: 550 MG, 1D
     Dates: start: 20100427, end: 20100506
  26. TOPINA [Concomitant]
     Active Substance: TOPIRAMATE
     Dosage: 500 MG, 1D
     Dates: start: 20100706, end: 20100720
  27. TOPINA [Concomitant]
     Active Substance: TOPIRAMATE
     Dosage: 400 MG, 1D
     Dates: start: 20100805, end: 20100901
  28. METHYCOBAL [Concomitant]
     Active Substance: METHYLCOBALAMIN
     Dosage: UNK
  29. LAMOTRIGINE. [Suspect]
     Active Substance: LAMOTRIGINE
     Dosage: UNK UNK, TID
     Route: 048
     Dates: start: 20100916, end: 20101019
  30. MYSTAN [Concomitant]
     Active Substance: CLOBAZAM
     Indication: EPILEPSY
     Dosage: 20 MG, 1D
  31. TOPINA [Concomitant]
     Active Substance: TOPIRAMATE
     Indication: EPILEPSY
     Dosage: 600 MG, 1D
     Dates: end: 20100426
  32. TOPINA [Concomitant]
     Active Substance: TOPIRAMATE
     Dosage: 600 MG, 1D
     Dates: start: 20100506, end: 20100510
  33. TOPINA [Concomitant]
     Active Substance: TOPIRAMATE
     Dosage: 550 MG, 1D
     Dates: start: 20100511, end: 20100705
  34. PAXIL [Concomitant]
     Active Substance: PAROXETINE HYDROCHLORIDE
     Dosage: UNK
  35. MOHRUS TAPE [Concomitant]
     Active Substance: KETOPROFEN
     Dosage: UNK
  36. LAMOTRIGINE. [Suspect]
     Active Substance: LAMOTRIGINE
     Dosage: 37.5 MG, BID
     Route: 048
     Dates: start: 20100525, end: 20100607
  37. TOPINA [Concomitant]
     Active Substance: TOPIRAMATE
     Dosage: 450 MG, 1D
     Dates: start: 20101025, end: 20101102

REACTIONS (9)
  - Toxicity to various agents [Recovered/Resolved]
  - Contusion [Recovered/Resolved]
  - Contusion [Recovered/Resolved]
  - Contusion [Recovered/Resolved]
  - Depressive symptom [Recovered/Resolved]
  - Epilepsy [Recovered/Resolved]
  - Pyrexia [Recovered/Resolved]
  - Headache [Recovered/Resolved]
  - Diarrhoea [Recovered/Resolved]

NARRATIVE: CASE EVENT DATE: 20100115
